FAERS Safety Report 7906070-8 (Version None)
Quarter: 2011Q4

REPORT INFORMATION
  Report Type: 
  Country: None (occurrence: None)
  Receive Date: 20111110
  Receipt Date: 20111110
  Transmission Date: 20120403
  Serious: Yes (Other)
  Sender: FDA-Public Use
  Company Number: None

PATIENT
  Age: 60 Year
  Sex: Female
  Weight: 49.895 kg

DRUGS (1)
  1. CALCITONIN SALMON [Suspect]
     Indication: OSTEOPENIA
     Dosage: 1 SPRAY
     Route: 045
     Dates: start: 20111001, end: 20111104

REACTIONS (6)
  - PRODUCT ODOUR ABNORMAL [None]
  - LUNG DISORDER [None]
  - BURNING SENSATION [None]
  - PRODUCT SUBSTITUTION ISSUE [None]
  - NASAL ULCER [None]
  - NASAL DISCOMFORT [None]
